FAERS Safety Report 14780215 (Version 2)
Quarter: 2018Q2

REPORT INFORMATION
  Report Type: Report from Study
  Country: MY (occurrence: MY)
  Receive Date: 20180419
  Receipt Date: 20180426
  Transmission Date: 20180711
  Serious: Yes (Death, Hospitalization, Other)
  Sender: FDA-Public Use
  Company Number: MY-SEATTLE GENETICS-2018SGN00462

PATIENT
  Age: 22 Year
  Sex: Male

DRUGS (4)
  1. BRENTUXIMAB VEDOTIN-MPI [Suspect]
     Active Substance: BRENTUXIMAB VEDOTIN
     Indication: HODGKIN^S DISEASE
     Dosage: 100 MG, UNK
     Route: 042
     Dates: start: 20170109
  2. VINBLASTINE [Concomitant]
     Active Substance: VINBLASTINE
     Dosage: UNK
     Route: 065
  3. DEXAMETHASONE. [Concomitant]
     Active Substance: DEXAMETHASONE
     Dosage: UNK
     Route: 065
  4. BRENTUXIMAB VEDOTIN-MPI [Suspect]
     Active Substance: BRENTUXIMAB VEDOTIN
     Dosage: UNK
     Route: 065
     Dates: start: 20180205

REACTIONS (2)
  - Sepsis [Recovered/Resolved]
  - Death [Fatal]

NARRATIVE: CASE EVENT DATE: 20180331
